FAERS Safety Report 7797786-5 (Version None)
Quarter: 2011Q4

REPORT INFORMATION
  Report Type: 
  Country: None (occurrence: None)
  Receive Date: 20111005
  Receipt Date: 20100921
  Transmission Date: 20120403
  Serious: Yes (Hospitalization, Other)
  Sender: FDA-Public Use
  Company Number: US-BAYER-200935670NA

PATIENT
  Age: 30 Year
  Sex: Female
  Weight: 97.506 kg

DRUGS (2)
  1. YAZ [Suspect]
     Route: 048
  2. YASMIN [Suspect]
     Indication: CONTRACEPTION
     Dosage: UNK UNK, QD
     Route: 048
     Dates: start: 20070901, end: 20080901

REACTIONS (6)
  - CHOLELITHIASIS [None]
  - PANCREATITIS [None]
  - RENAL FAILURE [None]
  - JAUNDICE [None]
  - CARDIAC MURMUR [None]
  - CHOLECYSTITIS CHRONIC [None]
